FAERS Safety Report 5661871-4 (Version None)
Quarter: 2008Q1

REPORT INFORMATION
  Report Type: 
  Country: None (occurrence: None)
  Receive Date: 20080312
  Receipt Date: 20080306
  Transmission Date: 20080703
  Serious: No
  Sender: FDA-Public Use
  Company Number: PT-ABBOTT-08P-130-0439976-00

PATIENT
  Sex: Female

DRUGS (1)
  1. HUMIRA [Suspect]
     Indication: ANKYLOSING SPONDYLITIS
     Route: 058
     Dates: start: 20080201

REACTIONS (1)
  - URTICARIA [None]
